FAERS Safety Report 20347480 (Version 5)
Quarter: 2022Q4

REPORT INFORMATION
  Report Type: Report from Study
  Country: CA (occurrence: CA)
  Receive Date: 20220118
  Receipt Date: 20221214
  Transmission Date: 20230112
  Serious: Yes (Other)
  Sender: FDA-Public Use
  Company Number: CA-OTSUKA-2022_000930

PATIENT
  Sex: Male

DRUGS (2)
  1. CEDAZURIDINE\DECITABINE [Suspect]
     Active Substance: CEDAZURIDINE\DECITABINE
     Indication: Myelodysplastic syndrome
     Dosage: 1 DF, QD (FOR 5 DAYS) PER CYCLE
     Route: 048
     Dates: start: 20211204
  2. CEDAZURIDINE\DECITABINE [Suspect]
     Active Substance: CEDAZURIDINE\DECITABINE
     Dosage: 1 DF, QD (FOR 4 DAYS) PER CYCLE/4 PILLS EVERY 28 DAYS
     Route: 048

REACTIONS (5)
  - Infusion [Unknown]
  - Blood product transfusion dependent [Recovered/Resolved]
  - Eastern Cooperative Oncology Group performance status worsened [Unknown]
  - General physical health deterioration [Unknown]
  - Therapy interrupted [Unknown]
